FAERS Safety Report 23409950 (Version 1)
Quarter: 2024Q1

REPORT INFORMATION
  Report Type: Other
  Country: None (occurrence: AU)
  Receive Date: 20240117
  Receipt Date: 20240117
  Transmission Date: 20240410
  Serious: Yes (Death)
  Sender: FDA-Public Use
  Company Number: AU-Creekwood Pharmaceuticals LLC-2151422

PATIENT
  Age: 29 Year
  Sex: Male

DRUGS (3)
  1. PREGABALIN [Suspect]
     Active Substance: PREGABALIN
     Indication: Pain
     Route: 065
  2. OXYCODONE. [Suspect]
     Active Substance: OXYCODONE HYDROCHLORIDE
     Route: 065
  3. AMITRIPTYLINE [Suspect]
     Active Substance: AMITRIPTYLINE
     Route: 065

REACTIONS (2)
  - Toxicity to various agents [Fatal]
  - Intentional product misuse [Unknown]
